FAERS Safety Report 9478878 (Version 2)
Quarter: 2013Q3

REPORT INFORMATION
  Report Type: Spontaneous
  Country: ZA (occurrence: ZA)
  Receive Date: 20130827
  Receipt Date: 20130827
  Transmission Date: 20140515
  Serious: Yes (Death, Other)
  Sender: FDA-Public Use
  Company Number: ZA-ROCHE-1256893

PATIENT
  Age: 58 Year
  Sex: Female
  Weight: 87 kg

DRUGS (3)
  1. XELODA [Suspect]
     Indication: BREAST CANCER
     Dosage: FOR 14 DAYS.
     Route: 065
     Dates: start: 20130624
  2. XELODA [Suspect]
     Dosage: 1/52 AND 1 DAY AT FULL DOSE.
     Route: 065
     Dates: start: 20130624
  3. FEMARA [Concomitant]
     Indication: BREAST CANCER
     Route: 065
     Dates: start: 20130624

REACTIONS (12)
  - Toxicity to various agents [Fatal]
  - Nausea [Fatal]
  - Vomiting [Fatal]
  - Pancytopenia [Fatal]
  - Diarrhoea [Unknown]
  - Atrial fibrillation [Unknown]
  - Platelet count decreased [Unknown]
  - Hypotension [Unknown]
  - Renal failure [Unknown]
  - Neutropenia [Unknown]
  - Rash [Unknown]
  - Pyrexia [Unknown]
